FAERS Safety Report 6971674-6 (Version None)
Quarter: 2010Q3

REPORT INFORMATION
  Report Type: 
  Country: None (occurrence: None)
  Receive Date: 20100908
  Receipt Date: 20100830
  Transmission Date: 20110219
  Serious: Yes (Other)
  Sender: FDA-Public Use
  Company Number: PHHY2010JP58452

PATIENT
  Sex: Male

DRUGS (1)
  1. FAMCICLOVIR [Suspect]
     Indication: HERPES ZOSTER
     Dosage: 500 MG DAILY
     Route: 048
     Dates: start: 20100825, end: 20100826

REACTIONS (1)
  - BLOOD CREATININE INCREASED [None]
